FAERS Safety Report 20736386 (Version 1)
Quarter: 2022Q2

REPORT INFORMATION
  Report Type: Spontaneous
  Country: US (occurrence: US)
  Receive Date: 20220421
  Receipt Date: 20220421
  Transmission Date: 20220721
  Serious: No
  Sender: FDA-Public Use
  Company Number: US-PFIZER INC-202101352272

PATIENT
  Age: 53 Year
  Sex: Female

DRUGS (9)
  1. XELJANZ XR [Suspect]
     Active Substance: TOFACITINIB CITRATE
     Indication: Rheumatoid arthritis
     Dosage: 11 MG, DAILY
     Route: 048
     Dates: start: 2018
  2. XOPENEX HFA [Concomitant]
     Active Substance: LEVALBUTEROL TARTRATE
     Dosage: 45 UG
  3. ANORO ELLIPTA [Concomitant]
     Active Substance: UMECLIDINIUM BROMIDE\VILANTEROL TRIFENATATE
     Dosage: 62.5 UG
  4. ANORO ELLIPTA [Concomitant]
     Active Substance: UMECLIDINIUM BROMIDE\VILANTEROL TRIFENATATE
     Dosage: 25 UG
  5. VITAMIN D2 [Concomitant]
     Active Substance: ERGOCALCIFEROL
     Dosage: 1250 UG
  6. MELOXICAM [Concomitant]
     Active Substance: MELOXICAM
     Dosage: 15 MG
  7. HERBALS\TURMERIC [Concomitant]
     Active Substance: HERBALS\TURMERIC
     Dosage: UNK
  8. ANTACID I [Concomitant]
     Dosage: UNK
  9. PAIN RELIEF NOS [Concomitant]
     Active Substance: CAMPHOR (SYNTHETIC)\LEVOMENTHOL\MENTHYL SALICYLATE OR CAMPHOR (SYNTHETIC)\MENTHOL\MENTHYL SALICYLATE
     Dosage: UNK

REACTIONS (1)
  - Pain in extremity [Not Recovered/Not Resolved]
